FAERS Safety Report 13982333 (Version 4)
Quarter: 2019Q3

REPORT INFORMATION
  Report Type: Report from Study
  Country: JP (occurrence: JP)
  Receive Date: 20170918
  Receipt Date: 20190816
  Transmission Date: 20191004
  Serious: Yes (Hospitalization, Other)
  Sender: FDA-Public Use
  Company Number: JP-ACTELION-A-CH2016-145983

PATIENT
  Age: 80 Year
  Sex: Female

DRUGS (14)
  1. FERROMIA [Concomitant]
     Active Substance: SODIUM FERROUS CITRATE
     Indication: PRODUCT USED FOR UNKNOWN INDICATION
  2. BAKTAR [Concomitant]
     Active Substance: SULFAMETHOXAZOLE\TRIMETHOPRIM
  3. GASMOTIN [Concomitant]
     Active Substance: MOSAPRIDE CITRATE
  4. ADCIRCA [Concomitant]
     Active Substance: TADALAFIL
  5. SLOW-K [Concomitant]
     Active Substance: POTASSIUM CHLORIDE
  6. ADEMPAS [Suspect]
     Active Substance: RIOCIGUAT
     Indication: PULMONARY ARTERIAL HYPERTENSION
     Dosage: 2.5 MG, TID
     Route: 048
     Dates: start: 20160618, end: 20190604
  7. SELARA [Concomitant]
     Active Substance: EPLERENONE
     Indication: PRODUCT USED FOR UNKNOWN INDICATION
  8. OXYGEN. [Concomitant]
     Active Substance: OXYGEN
     Indication: PRODUCT USED FOR UNKNOWN INDICATION
  9. URSO [Concomitant]
     Active Substance: URSODIOL
  10. OPSUMIT [Suspect]
     Active Substance: MACITENTAN
     Indication: PULMONARY ARTERIAL HYPERTENSION
     Dosage: 10 MG, QD
     Route: 048
     Dates: start: 20160705
  11. SAMSCA [Concomitant]
     Active Substance: TOLVAPTAN
  12. RECALBON [Concomitant]
  13. LASIX [Concomitant]
     Active Substance: FUROSEMIDE
     Indication: PRODUCT USED FOR UNKNOWN INDICATION
  14. ALDACTONE [Concomitant]
     Active Substance: SPIRONOLACTONE

REACTIONS (17)
  - Blood bilirubin increased [Recovering/Resolving]
  - Occult blood positive [Recovering/Resolving]
  - Haematocrit decreased [Recovered/Resolved]
  - Hepatic function abnormal [Recovering/Resolving]
  - Autoimmune hepatitis [Recovering/Resolving]
  - Blood alkaline phosphatase increased [Recovering/Resolving]
  - Gamma-glutamyltransferase increased [Recovering/Resolving]
  - Nausea [Recovering/Resolving]
  - Gastric polyps [Recovering/Resolving]
  - Alanine aminotransferase increased [Recovering/Resolving]
  - Haemoglobin decreased [Recovered/Resolved]
  - Herpes zoster [Recovering/Resolving]
  - Aspartate aminotransferase increased [Recovering/Resolving]
  - Malaise [Recovering/Resolving]
  - Hypotension [Recovering/Resolving]
  - Gastrooesophageal reflux disease [Recovering/Resolving]
  - Anaemia [Recovered/Resolved]

NARRATIVE: CASE EVENT DATE: 201608
